FAERS Safety Report 7241510-1 (Version None)
Quarter: 2011Q1

REPORT INFORMATION
  Report Type: 
  Country: None (occurrence: None)
  Receive Date: 20110124
  Receipt Date: 20110114
  Transmission Date: 20110831
  Serious: Yes (Life-Threatening)
  Sender: FDA-Public Use
  Company Number: JP-ASTRAZENECA-2011SE03347

PATIENT
  Age: 0 Week

DRUGS (6)
  1. LANTUS [Concomitant]
     Indication: TYPE 1 DIABETES MELLITUS
  2. KENZEN [Suspect]
     Indication: HYPERTENSION
  3. APIDRA [Concomitant]
     Indication: TYPE 1 DIABETES MELLITUS
  4. XANAX [Concomitant]
     Indication: DEPRESSION
  5. EFFEXOR [Concomitant]
     Indication: DEPRESSION
  6. TAHOR [Concomitant]
     Indication: PRODUCT USED FOR UNKNOWN INDICATION

REACTIONS (4)
  - MATERNAL DRUGS AFFECTING FOETUS [None]
  - ABORTION INDUCED [None]
  - OLIGOHYDRAMNIOS [None]
  - FOETAL DAMAGE [None]
